FAERS Safety Report 6027467-X (Version None)
Quarter: 2008Q4

REPORT INFORMATION
  Report Type: 
  Country: None (occurrence: None)
  Receive Date: 20081222
  Receipt Date: 20080917
  Transmission Date: 20090506
  Serious: No
  Sender: FDA-Public Use
  Company Number: US-WYE-H06033508

PATIENT
  Age: 36 Year
  Sex: Female
  Weight: 63.56 kg

DRUGS (4)
  1. PRISTIQ [Suspect]
     Indication: OBSESSIVE-COMPULSIVE DISORDER
     Dosage: 50 MG 1X PER 1 DAY, ORAL
     Route: 048
     Dates: start: 20080916
  2. ADDERALL 10 [Concomitant]
  3. KLONOPIN [Concomitant]
  4. AMPHETAMINE SULFATE [Concomitant]

REACTIONS (1)
  - MEDICATION RESIDUE [None]
